FAERS Safety Report 4559180-X (Version None)
Quarter: 2005Q1

REPORT INFORMATION
  Report Type: 
  Country: None (occurrence: None)
  Receive Date: 20050124
  Receipt Date: 20041214
  Transmission Date: 20050727
  Serious: Yes (Other)
  Sender: FDA-Public Use
  Company Number: US-AMGEN-KDL106212

PATIENT
  Sex: Female
  Weight: 72.6 kg

DRUGS (5)
  1. ENBREL [Suspect]
     Indication: RHEUMATOID ARTHRITIS
     Route: 058
     Dates: start: 20031101, end: 20040901
  2. ARAVA [Concomitant]
     Dates: start: 20000601, end: 20000801
  3. CELEBREX [Concomitant]
  4. ACTONEL (PROCTOR + GAMBLE) [Concomitant]
  5. TOPROL-XL [Concomitant]

REACTIONS (1)
  - WEGENER'S GRANULOMATOSIS [None]
